FAERS Safety Report 8137476-2 (Version None)
Quarter: 2012Q1

REPORT INFORMATION
  Report Type: 
  Country: None (occurrence: None)
  Receive Date: 20120103
  Receipt Date: 20110909
  Transmission Date: 20120608
  Serious: No
  Sender: FDA-Public Use
  Company Number: AE-2011-001436

PATIENT
  Age: 55 Year
  Sex: Male

DRUGS (3)
  1. RIBAVIRIN [Concomitant]
  2. INCIVEK [Suspect]
     Dosage: 2250 MG (750  MG,1 IN 8 HR), ORAL
     Route: 048
     Dates: start: 20110826, end: 20110831
  3. PEGASYS [Concomitant]

REACTIONS (4)
  - PRURITUS GENERALISED [None]
  - NAUSEA [None]
  - RASH [None]
  - ANXIETY [None]
